FAERS Safety Report 7684638-4 (Version None)
Quarter: 2011Q3

REPORT INFORMATION
  Report Type: 
  Country: None (occurrence: None)
  Receive Date: 20110816
  Receipt Date: 20091104
  Transmission Date: 20111222
  Serious: No
  Sender: FDA-Public Use
  Company Number: 2009BI035809

PATIENT
  Sex: Male

DRUGS (3)
  1. TYSABRI [Suspect]
     Indication: MULTIPLE SCLEROSIS
     Route: 042
     Dates: start: 20080324, end: 20091203
  2. TYSABRI [Suspect]
     Route: 042
     Dates: start: 20050221, end: 20050221
  3. DICLOFENAC SODIUM [Concomitant]
     Indication: SPONDYLITIS

REACTIONS (4)
  - DRUG SPECIFIC ANTIBODY PRESENT [None]
  - RASH [None]
  - HYPERSENSITIVITY [None]
  - CHILLS [None]
